FAERS Safety Report 17130577 (Version 1)
Quarter: 2019Q4

REPORT INFORMATION
  Report Type: Spontaneous
  Country: DE (occurrence: DE)
  Receive Date: 20191209
  Receipt Date: 20191209
  Transmission Date: 20200122
  Serious: Yes (Other)
  Sender: FDA-Public Use
  Company Number: DE-MYLANLABS-2019M1119935

PATIENT
  Age: 65 Year
  Sex: Male
  Weight: 59 kg

DRUGS (2)
  1. METOPROLOL. [Suspect]
     Active Substance: METOPROLOL
     Dosage: 95 MG, BID (TWICE OF 47.5 MG, 2 IN MORNING AND TWO IN EVENING)
     Route: 065
  2. METOPROLOL. [Suspect]
     Active Substance: METOPROLOL
     Indication: ATRIAL FIBRILLATION
     Dosage: 47.5 MG, UNK
     Route: 065

REACTIONS (6)
  - Metastases to lung [Unknown]
  - Malaise [Unknown]
  - Arrhythmia [Unknown]
  - Renal cancer [Unknown]
  - Hypotension [Unknown]
  - Pulse abnormal [Unknown]
